FAERS Safety Report 18658177 (Version 2)
Quarter: 2020Q4

REPORT INFORMATION
  Report Type: Spontaneous
  Country: US (occurrence: US)
  Receive Date: 20201224
  Receipt Date: 20201231
  Transmission Date: 20210114
  Serious: Yes (Death, Life-Threatening, Hospitalization, Disabling, Other)
  Sender: FDA-Public Use
  Company Number: US-ADVANZ PHARMA-202012011095

PATIENT

DRUGS (1)
  1. HYDROXYCHLOROQUINE [Suspect]
     Active Substance: HYDROXYCHLOROQUINE
     Indication: RHEUMATOID ARTHRITIS
     Dosage: 400 MG, QD
     Route: 065

REACTIONS (14)
  - Oedema peripheral [Fatal]
  - Bedridden [Fatal]
  - Clostridial sepsis [Fatal]
  - Cardiotoxicity [Fatal]
  - Ejection fraction decreased [Fatal]
  - Acute motor-sensory axonal neuropathy [Fatal]
  - Dysarthria [Fatal]
  - Cardiac failure [Fatal]
  - Asthenia [Fatal]
  - Myopathy [Fatal]
  - Left ventricular dysfunction [Fatal]
  - Ventricular hypokinesia [Fatal]
  - Neuromyopathy [Fatal]
  - Dysphagia [Fatal]
